FAERS Safety Report 18844325 (Version 1)
Quarter: 2021Q1

REPORT INFORMATION
  Report Type: Report from Study
  Country: US (occurrence: US)
  Receive Date: 20210203
  Receipt Date: 20210203
  Transmission Date: 20210419
  Serious: No
  Sender: FDA-Public Use
  Company Number: US-EXELIXIS-CABO-19025758

PATIENT
  Sex: Male

DRUGS (1)
  1. CABOMETYX [Suspect]
     Active Substance: CABOZANTINIB S-MALATE
     Indication: RENAL CANCER
     Dosage: 20 MG, QD (AT HS)
     Dates: start: 20191103

REACTIONS (6)
  - Blood calcium increased [Recovering/Resolving]
  - Back pain [Unknown]
  - Weight decreased [Unknown]
  - Decreased appetite [Unknown]
  - Constipation [Unknown]
  - Hypertension [Unknown]
